FAERS Safety Report 5931957-5 (Version None)
Quarter: 2008Q4

REPORT INFORMATION
  Report Type: 
  Country: None (occurrence: None)
  Receive Date: 20081027
  Receipt Date: 20081020
  Transmission Date: 20090506
  Serious: Yes (Other)
  Sender: FDA-Public Use
  Company Number: PHBS2008KR06094

PATIENT
  Age: 52 Year
  Sex: Female

DRUGS (2)
  1. CARBAMAZEPINE [Suspect]
     Indication: FACIAL PAIN
     Dosage: 200 MG, TID
     Route: 065
  2. CARBAMAZEPINE [Suspect]
     Dosage: 200 MG, ONCE/SINGLE
     Route: 065

REACTIONS (2)
  - ALOPECIA [None]
  - PSORIASIS [None]
